FAERS Safety Report 23771052 (Version 1)
Quarter: 2024Q2

REPORT INFORMATION
  Report Type: Spontaneous
  Country: PL (occurrence: PL)
  Receive Date: 20240423
  Receipt Date: 20240423
  Transmission Date: 20240716
  Serious: Yes (Hospitalization)
  Sender: FDA-Public Use
  Company Number: PL-BoehringerIngelheim-2024-BI-022483

PATIENT
  Age: 68 Year
  Sex: Female

DRUGS (3)
  1. OFEV [Suspect]
     Active Substance: NINTEDANIB
     Indication: Systemic scleroderma
     Dates: start: 202309, end: 202403
  2. OFEV [Suspect]
     Active Substance: NINTEDANIB
     Indication: Dermatomyositis
  3. OFEV [Suspect]
     Active Substance: NINTEDANIB
     Indication: Interstitial lung disease

REACTIONS (4)
  - Skin ulcer [Unknown]
  - Skin lesion [Unknown]
  - Digital pulpitis [Unknown]
  - Forced vital capacity decreased [Unknown]

NARRATIVE: CASE EVENT DATE: 20240301
